FAERS Safety Report 16558854 (Version 1)
Quarter: 2019Q3

REPORT INFORMATION
  Report Type: Spontaneous
  Country: GB (occurrence: GB)
  Receive Date: 20190711
  Receipt Date: 20190711
  Transmission Date: 20191004
  Serious: Yes (Other)
  Sender: FDA-Public Use
  Company Number: GB-TEVA-2019-GB-1074805

PATIENT
  Age: 67 Year
  Sex: Female
  Weight: 63.95 kg

DRUGS (11)
  1. KLIOVANCE [Concomitant]
     Active Substance: ESTRADIOL\NORETHINDRONE ACETATE
  2. ALVERINE CITRATE [Concomitant]
     Active Substance: ALVERINE CITRATE
  3. HYLO-FORTE [Concomitant]
     Active Substance: HYALURONATE SODIUM
  4. PRAMIPEXOLE. [Concomitant]
     Active Substance: PRAMIPEXOLE
  5. PANTOPRAZOLE [Suspect]
     Active Substance: PANTOPRAZOLE
     Dosage: EACH MORNING.
     Route: 048
     Dates: start: 20190601, end: 20190611
  6. ELETRIPTAN. [Concomitant]
     Active Substance: ELETRIPTAN
  7. TRAMADOL. [Concomitant]
     Active Substance: TRAMADOL
  8. MELOXICAM. [Concomitant]
     Active Substance: MELOXICAM
  9. CARBOMERS [Concomitant]
  10. RANITIDINE. [Concomitant]
     Active Substance: RANITIDINE
  11. HYOSCINE BUTYLBROMIDE [Concomitant]
     Active Substance: BUTYLSCOPOLAMINE BROMIDE

REACTIONS (7)
  - Sleep disorder [Not Recovered/Not Resolved]
  - Vomiting [Not Recovered/Not Resolved]
  - Abdominal pain upper [Not Recovered/Not Resolved]
  - Fatigue [Not Recovered/Not Resolved]
  - Diarrhoea [Not Recovered/Not Resolved]
  - Nausea [Not Recovered/Not Resolved]
  - Dyspepsia [Not Recovered/Not Resolved]

NARRATIVE: CASE EVENT DATE: 20190601
